FAERS Safety Report 6532751-7 (Version None)
Quarter: 2010Q1

REPORT INFORMATION
  Report Type: 
  Country: None (occurrence: None)
  Receive Date: 20100111
  Receipt Date: 20100105
  Transmission Date: 20100710
  Serious: Yes (Death)
  Sender: FDA-Public Use
  Company Number: US-ASTRAZENECA-2010SE00885

PATIENT
  Age: 57 Year
  Sex: Male

DRUGS (7)
  1. ATENOLOL [Suspect]
     Route: 048
  2. FLUOXETINE [Suspect]
     Route: 048
  3. BENZODIAZEPINE [Suspect]
     Route: 048
  4. ZOLPIDEM [Suspect]
     Route: 048
  5. HYDROCODONE/IBUPROFEN [Suspect]
     Route: 048
  6. HYDROCODONE [Suspect]
     Route: 048
  7. MARIJUANA [Suspect]
     Route: 065

REACTIONS (1)
  - DRUG TOXICITY [None]
